FAERS Safety Report 8880187 (Version 1)
Quarter: 2012Q4

REPORT INFORMATION
  Report Type: 
  Country: US (occurrence: US)
  Receive Date: 20121031
  Receipt Date: 20121031
  Transmission Date: 20130627
  Serious: Yes (Other)
  Sender: FDA-Public Use
  Company Number: US-BAYER-2012-111924

PATIENT
  Age: 73 Year
  Sex: Male
  Weight: 73 kg

DRUGS (10)
  1. ALEVE CAPLET/TABLET,MIDOL EXTENDED RELIEF CAPLET [Suspect]
     Dosage: dose: 4 caplets. Bottle countr 100s
     Dates: start: 2012, end: 20120604
  2. CLONAZEPAM [Concomitant]
  3. LISINOPRIL [Concomitant]
  4. LOVASTATIN [Concomitant]
  5. PROPRANOLOL [Concomitant]
  6. RANITIDINE [Concomitant]
  7. CITALOPRAM [Concomitant]
  8. TRAMADOL [Concomitant]
  9. MORPHINE [Concomitant]
  10. ASPIRIN [Concomitant]
     Dosage: UNK
     Dates: end: 201206

REACTIONS (1)
  - Gastric haemorrhage [Recovered/Resolved]
